FAERS Safety Report 15437733 (Version 3)
Quarter: 2019Q3

REPORT INFORMATION
  Report Type: Report from Study
  Country: US (occurrence: US)
  Receive Date: 20180927
  Receipt Date: 20190926
  Transmission Date: 20191004
  Serious: Yes (Hospitalization, Other)
  Sender: FDA-Public Use
  Company Number: US-TAKEDA-2018TUS028275

PATIENT
  Age: 55 Year
  Sex: Female
  Weight: 67.12 kg

DRUGS (8)
  1. VEDOLIZUMAB [Suspect]
     Active Substance: VEDOLIZUMAB
     Indication: CROHN^S DISEASE
     Dosage: 300 MG, UNK
     Route: 042
     Dates: start: 20170519
  2. HEPARIN [Suspect]
     Active Substance: HEPARIN SODIUM
     Indication: PRODUCT USED FOR UNKNOWN INDICATION
     Route: 065
  3. CYCLOSPORINE. [Concomitant]
     Active Substance: CYCLOSPORINE
     Indication: DRY EYE
     Dosage: UNK
     Route: 047
  4. HYDROCORTISONE ACETATE PRAMOXIN HCL [Concomitant]
     Indication: CROHN^S DISEASE
     Dosage: UNK
     Route: 054
  5. CHLORDIAZEPOXIDE W/CLIDINIUM BROMIDE [Concomitant]
     Indication: CROHN^S DISEASE
     Dosage: UNK
     Route: 048
  6. VITAMIN B12 [Concomitant]
     Active Substance: CYANOCOBALAMIN
     Indication: SUPPLEMENTATION THERAPY
     Dosage: 100 UG, UNK
     Route: 030
  7. PANTOPRAZOLE [Concomitant]
     Active Substance: PANTOPRAZOLE
     Indication: GASTROOESOPHAGEAL REFLUX DISEASE
     Dosage: UNK
     Route: 048
  8. PREDNISONE. [Suspect]
     Active Substance: PREDNISONE
     Indication: INFLAMMATION
     Dosage: UNK
     Route: 048
     Dates: start: 20180920

REACTIONS (24)
  - Abdominal pain [Not Recovered/Not Resolved]
  - Urinary retention [Unknown]
  - Gastrointestinal inflammation [Unknown]
  - Feeling abnormal [Unknown]
  - Sinusitis [Not Recovered/Not Resolved]
  - Urinary tract infection [Recovered/Resolved]
  - Contusion [Recovered/Resolved]
  - Flank pain [Unknown]
  - Ear infection [Not Recovered/Not Resolved]
  - Vein rupture [Unknown]
  - Pelvic pain [Unknown]
  - Abdominal distension [Recovered/Resolved]
  - Alopecia [Not Recovered/Not Resolved]
  - Platelet count decreased [Recovered/Resolved]
  - Abdominal infection [Not Recovered/Not Resolved]
  - Back pain [Unknown]
  - Poor venous access [Unknown]
  - Vomiting [Not Recovered/Not Resolved]
  - Blood glucose increased [Recovered/Resolved]
  - Blood pressure increased [Recovered/Resolved]
  - Headache [Not Recovered/Not Resolved]
  - Diarrhoea [Not Recovered/Not Resolved]
  - Nausea [Not Recovered/Not Resolved]
  - Gastrointestinal obstruction [Recovered/Resolved]

NARRATIVE: CASE EVENT DATE: 201708
